FAERS Safety Report 11854004 (Version 2)
Quarter: 2015Q4

REPORT INFORMATION
  Report Type: Spontaneous
  Country: US (occurrence: US)
  Receive Date: 20151219
  Receipt Date: 20151222
  Transmission Date: 20160305
  Serious: No
  Sender: FDA-Public Use
  Company Number: US-009507513-1512USA005142

PATIENT
  Sex: Female

DRUGS (3)
  1. CLARITIN [Interacting]
     Active Substance: LORATADINE
  2. MECLIZINE [Interacting]
     Active Substance: MECLIZINE\MECLIZINE HYDROCHLORIDE
  3. ASMANEX HFA [Suspect]
     Active Substance: MOMETASONE FUROATE
     Indication: ASTHMA
     Dosage: 220 MICROGRAM, ONE PUFF DAILY
     Dates: start: 2013

REACTIONS (3)
  - Drug interaction [Unknown]
  - Labyrinthitis [Recovered/Resolved]
  - Product quality issue [Unknown]
